FAERS Safety Report 4400863-X (Version None)
Quarter: 2004Q3

REPORT INFORMATION
  Report Type: 
  Country: None (occurrence: None)
  Receive Date: 20040907
  Receipt Date: 20030710
  Transmission Date: 20050211
  Serious: No
  Sender: FDA-Public Use
  Company Number: US-BRISTOL-MYERS SQUIBB COMPANY-12322814

PATIENT
  Age: 47 Year
  Sex: Male
  Weight: 119 kg

DRUGS (3)
  1. COUMADIN [Suspect]
     Indication: PROPHYLAXIS
     Dosage: INCREASED TO 10 MG DAILY AFTER ONE AND ONE HALF MONTHS.
  2. DIGOXIN [Concomitant]
     Dosage: DOSE RECENTLY DOUBLED.
  3. GLUCOPHAGE [Concomitant]

REACTIONS (2)
  - ERECTILE DYSFUNCTION [None]
  - LIBIDO DECREASED [None]
